FAERS Safety Report 24008193 (Version 6)
Quarter: 2024Q4

REPORT INFORMATION
  Report Type: Report from Study
  Country: CO (occurrence: CO)
  Receive Date: 20240625
  Receipt Date: 20241015
  Transmission Date: 20250115
  Serious: Yes (Hospitalization)
  Sender: NOVARTIS
  Company Number: CO-002147023-NVSC2021CO285425

PATIENT
  Age: 62 Year
  Sex: Female
  Weight: 55 kg

DRUGS (11)
  1. KISQALI [Suspect]
     Active Substance: RIBOCICLIB
     Indication: Breast cancer metastatic
     Dosage: 600 MG, QD
     Route: 048
     Dates: start: 20210831, end: 20240406
  2. KISQALI [Suspect]
     Active Substance: RIBOCICLIB
     Indication: Hormone receptor positive HER2 negative breast cancer
     Dosage: 1 DOSAGE FORM, QD
     Route: 048
     Dates: start: 20240406
  3. KISQALI [Suspect]
     Active Substance: RIBOCICLIB
     Dosage: 600 MG, QD
     Route: 048
     Dates: end: 202405
  4. KISQALI [Suspect]
     Active Substance: RIBOCICLIB
     Dosage: 600 MG, QD (3 TABLETS)
     Route: 048
     Dates: end: 20240805
  5. KISQALI [Suspect]
     Active Substance: RIBOCICLIB
     Dosage: 2 DOSAGE FORM, QD
     Route: 048
     Dates: start: 20240815
  6. KISQALI [Suspect]
     Active Substance: RIBOCICLIB
     Dosage: 400 MG, QD (2 OF 200 MG)
     Route: 048
  7. FEMARA [Suspect]
     Active Substance: LETROZOLE
     Indication: Product used for unknown indication
     Dosage: UNK
     Route: 065
  8. FULVESTRANT [Concomitant]
     Active Substance: FULVESTRANT
     Indication: Product used for unknown indication
     Dosage: UNK
     Route: 058
     Dates: end: 20240530
  9. FULVESTRANT [Concomitant]
     Active Substance: FULVESTRANT
     Dosage: 500 MG, QMO
     Route: 058
  10. FULVESTRANT [Concomitant]
     Active Substance: FULVESTRANT
     Dosage: 500 MG, QMO
     Route: 030
  11. VANCOMYCIN [Concomitant]
     Active Substance: VANCOMYCIN
     Indication: Product used for unknown indication
     Dosage: UNK
     Route: 065

REACTIONS (20)
  - Cellulitis [Not Recovered/Not Resolved]
  - Mass [Recovering/Resolving]
  - Toxicity to various agents [Not Recovered/Not Resolved]
  - Anaemia [Not Recovered/Not Resolved]
  - Decreased immune responsiveness [Recovering/Resolving]
  - Pain [Unknown]
  - Wrong technique in product usage process [Not Recovered/Not Resolved]
  - Cough [Recovering/Resolving]
  - Alopecia [Not Recovered/Not Resolved]
  - Nodule [Unknown]
  - Vomiting [Unknown]
  - Pruritus [Unknown]
  - Nausea [Recovering/Resolving]
  - Weight decreased [Unknown]
  - Off label use [Unknown]
  - Intentional dose omission [Unknown]
  - Product prescribing error [Unknown]
  - Fatigue [Not Recovered/Not Resolved]
  - Dyspepsia [Not Recovered/Not Resolved]
  - Reflux gastritis [Not Recovered/Not Resolved]

NARRATIVE: CASE EVENT DATE: 20231201
